FAERS Safety Report 4631881-4 (Version None)
Quarter: 2005Q2

REPORT INFORMATION
  Report Type: 
  Country: None (occurrence: None)
  Receive Date: 20050411
  Receipt Date: 20050404
  Transmission Date: 20051028
  Serious: Yes (Death, Other)
  Sender: FDA-Public Use
  Company Number: US-BRISTOL-MYERS SQUIBB COMPANY-12926176

PATIENT
  Age: 84 Year
  Sex: Female

DRUGS (1)
  1. SERZONE [Suspect]
     Dates: start: 19970924, end: 19980526

REACTIONS (2)
  - DEATH [None]
  - HEPATOCELLULAR DAMAGE [None]
